FAERS Safety Report 6753937-2 (Version None)
Quarter: 2010Q2

REPORT INFORMATION
  Report Type: 
  Country: None (occurrence: None)
  Receive Date: 20100601
  Receipt Date: 20100517
  Transmission Date: 20101027
  Serious: Yes (Hospitalization)
  Sender: FDA-Public Use
  Company Number: 2010002019

PATIENT
  Age: 73 Year
  Sex: Male

DRUGS (9)
  1. ERLOTINIB (ERLOTINIB) (TABLET) (ERLOTINIB) [Suspect]
     Indication: NON-SMALL CELL LUNG CANCER
     Dosage: 150 MG, QD, ORAL
     Route: 048
     Dates: start: 20100326, end: 20100507
  2. BEVACIZUMAB [Suspect]
     Indication: NON-SMALL CELL LUNG CANCER
     Dosage: 893 MG
     Dates: start: 20100326, end: 20100416
  3. MULTI-VITAMIN [Concomitant]
  4. ADVAIR DISKUS (SERETIDE MITE) [Concomitant]
  5. FOLIC ACID [Concomitant]
  6. MOBIC [Concomitant]
  7. LEVAQUIN [Concomitant]
  8. OXYCONTIN [Concomitant]
  9. ZOFRAN [Concomitant]

REACTIONS (4)
  - CHRONIC OBSTRUCTIVE PULMONARY DISEASE [None]
  - CONDITION AGGRAVATED [None]
  - EJECTION FRACTION DECREASED [None]
  - NAUSEA [None]
